FAERS Safety Report 12617393 (Version 1)
Quarter: 2016Q3

REPORT INFORMATION
  Report Type: Spontaneous
  Country: US (occurrence: None)
  Receive Date: 20160802
  Receipt Date: 20160802
  Transmission Date: 20161109
  Serious: No
  Sender: FDA-Public Use
  Company Number: None

PATIENT

DRUGS (1)
  1. HEPARIN SOD. I NJECTION 10,000 UNITS/ML HEPARIN SODIUM [Suspect]
     Active Substance: HEPARIN SODIUM
     Dosage: INJECTABLE INJECTION 10,000 UNITS/10ML (1,000 U NITS/ML)

REACTIONS (1)
  - Product label confusion [None]
